FAERS Safety Report 21148901 (Version 1)
Quarter: 2022Q3

REPORT INFORMATION
  Report Type: Spontaneous
  Country: US (occurrence: None)
  Receive Date: 20220729
  Receipt Date: 20220729
  Transmission Date: 20221027
  Serious: Yes (Hospitalization)
  Sender: FDA-Public Use
  Company Number: None

PATIENT
  Sex: Male

DRUGS (1)
  1. NIVESTYM [Suspect]
     Active Substance: FILGRASTIM-AAFI
     Indication: Lymphocytic leukaemia
     Dosage: FREQUENCY : DAILY;?
     Route: 058
     Dates: start: 20220628

REACTIONS (2)
  - Leukaemia recurrent [None]
  - Therapy interrupted [None]
